FAERS Safety Report 6580892-0 (Version None)
Quarter: 2010Q1

REPORT INFORMATION
  Report Type: 
  Country: None (occurrence: None)
  Receive Date: 20100203
  Receipt Date: 20100111
  Transmission Date: 20100710
  Serious: Yes (Hospitalization)
  Sender: FDA-Public Use
  Company Number: 1-21207666

PATIENT
  Age: 83 Year
  Sex: Male
  Weight: 68.0396 kg

DRUGS (8)
  1. FENTANYL [Suspect]
     Indication: BACK PAIN
     Dosage: 100 MCG/HR Q 72 HRS, TRANSDERMAL
     Route: 062
     Dates: start: 20091229, end: 20091231
  2. FENTANYL [Suspect]
     Indication: NEURALGIA
     Dosage: 100 MCG/HR Q 72 HRS, TRANSDERMAL
     Route: 062
     Dates: start: 20091229, end: 20091231
  3. LISINOPRIL [Concomitant]
  4. GLIPIZIDE [Concomitant]
  5. VYTORIN [Concomitant]
  6. FELODIPINE [Concomitant]
  7. ALLOPURINOL [Concomitant]
  8. PROSCAR [Concomitant]

REACTIONS (8)
  - ANAEMIA [None]
  - CONSTIPATION [None]
  - DRUG INEFFECTIVE [None]
  - HICCUPS [None]
  - LIVER FUNCTION TEST ABNORMAL [None]
  - NAUSEA [None]
  - OESOPHAGITIS [None]
  - VOMITING [None]
